FAERS Safety Report 4918077-3 (Version None)
Quarter: 2006Q1

REPORT INFORMATION
  Report Type: 
  Country: None (occurrence: None)
  Receive Date: 20060221
  Receipt Date: 20051019
  Transmission Date: 20060701
  Serious: Yes (Hospitalization, Other)
  Sender: FDA-Public Use
  Company Number: US-MERCK-0510USA08336

PATIENT
  Age: 55 Year
  Sex: Male
  Weight: 145 kg

DRUGS (8)
  1. VIOXX [Suspect]
     Indication: BACK PAIN
     Route: 048
     Dates: start: 20020101, end: 20040901
  2. LOTENSIN [Concomitant]
     Indication: CARDIAC DISORDER
     Route: 065
  3. ISOSORBIDE [Concomitant]
     Indication: BLOOD PRESSURE
     Route: 065
  4. HYDROCODONE BITARTRATE [Concomitant]
     Indication: PAIN
     Route: 065
  5. AMIODARONE [Concomitant]
     Route: 065
  6. WARFARIN [Concomitant]
     Indication: ANTICOAGULANT THERAPY
     Route: 065
  7. DILTIAZEM MALATE [Concomitant]
     Indication: CARDIAC DISORDER
     Route: 065
  8. LIPITOR [Concomitant]
     Indication: BLOOD CHOLESTEROL
     Route: 065
     Dates: start: 19950101

REACTIONS (14)
  - ADVERSE EVENT [None]
  - ANGINA PECTORIS [None]
  - ARTERIAL OCCLUSIVE DISEASE [None]
  - BLOOD CHOLESTEROL INCREASED [None]
  - BLOOD TRIGLYCERIDES INCREASED [None]
  - CARDIAC DISORDER [None]
  - CHEST PAIN [None]
  - DIZZINESS [None]
  - GALLBLADDER DISORDER [None]
  - GASTRIC DISORDER [None]
  - HEART INJURY [None]
  - HEART RATE INCREASED [None]
  - HEART RATE IRREGULAR [None]
  - ROTATOR CUFF SYNDROME [None]
